FAERS Safety Report 5732889-8 (Version None)
Quarter: 2008Q2

REPORT INFORMATION
  Report Type: 
  Country: None (occurrence: None)
  Receive Date: 20080507
  Receipt Date: 20080507
  Transmission Date: 20081010
  Serious: Yes (Life-Threatening)
  Sender: FDA-Public Use
  Company Number: None

PATIENT
  Age: 60 Year
  Sex: Male
  Weight: 89.8122 kg

DRUGS (1)
  1. DIGITEK  .25 MG  BERTEK [Suspect]
     Indication: ATRIAL FIBRILLATION
     Dosage: .25 DAILY PO
     Route: 048
     Dates: start: 20020612, end: 20080504

REACTIONS (4)
  - HEART RATE DECREASED [None]
  - PHARMACEUTICAL PRODUCT COMPLAINT [None]
  - RASH [None]
  - SWELLING [None]
